FAERS Safety Report 19222908 (Version 1)
Quarter: 2021Q2

REPORT INFORMATION
  Report Type: Spontaneous
  Country: US (occurrence: US)
  Receive Date: 20210506
  Receipt Date: 20210506
  Transmission Date: 20210717
  Serious: Yes (Other)
  Sender: FDA-Public Use
  Company Number: US-GLAXOSMITHKLINE-US2021GSK098381

PATIENT
  Sex: Female

DRUGS (16)
  1. ZANTAC [Suspect]
     Active Substance: RANITIDINE HYDROCHLORIDE
     Indication: GASTROOESOPHAGEAL REFLUX DISEASE
     Dosage: 150 MG, WE
     Route: 065
     Dates: start: 199001, end: 202001
  2. RANITIDINE. [Suspect]
     Active Substance: RANITIDINE
     Indication: GASTROOESOPHAGEAL REFLUX DISEASE
     Dosage: 150 MG, WE
     Route: 065
     Dates: start: 199001, end: 202001
  3. ZANTAC [Suspect]
     Active Substance: RANITIDINE HYDROCHLORIDE
     Indication: HYPOTHYROIDISM
  4. RANITIDINE. [Suspect]
     Active Substance: RANITIDINE
     Indication: MIGRAINE
  5. RANITIDINE. [Suspect]
     Active Substance: RANITIDINE
     Indication: HYPOTHYROIDISM
  6. ZANTAC [Suspect]
     Active Substance: RANITIDINE HYDROCHLORIDE
     Indication: HYPOTHYROIDISM
  7. RANITIDINE. [Suspect]
     Active Substance: RANITIDINE
     Indication: GASTROOESOPHAGEAL REFLUX DISEASE
     Dosage: 150 MG, WE
     Route: 065
     Dates: start: 199001, end: 202001
  8. RANITIDINE. [Suspect]
     Active Substance: RANITIDINE
     Indication: CERVICAL DYSPLASIA
  9. ZANTAC [Suspect]
     Active Substance: RANITIDINE HYDROCHLORIDE
     Indication: CERVICAL DYSPLASIA
  10. RANITIDINE. [Suspect]
     Active Substance: RANITIDINE
     Indication: HYPOTHYROIDISM
  11. ZANTAC [Suspect]
     Active Substance: RANITIDINE HYDROCHLORIDE
     Indication: GASTROOESOPHAGEAL REFLUX DISEASE
     Dosage: 150 MG, WE
     Route: 065
     Dates: start: 199001, end: 202001
  12. ZANTAC [Suspect]
     Active Substance: RANITIDINE HYDROCHLORIDE
     Indication: CERVICAL DYSPLASIA
  13. ZANTAC [Suspect]
     Active Substance: RANITIDINE HYDROCHLORIDE
     Indication: MIGRAINE
  14. RANITIDINE. [Suspect]
     Active Substance: RANITIDINE
     Indication: CERVICAL DYSPLASIA
  15. ZANTAC [Suspect]
     Active Substance: RANITIDINE HYDROCHLORIDE
     Indication: MIGRAINE
  16. RANITIDINE. [Suspect]
     Active Substance: RANITIDINE
     Indication: MIGRAINE

REACTIONS (1)
  - Breast cancer [Unknown]
